FAERS Safety Report 7889532-1 (Version None)
Quarter: 2011Q4

REPORT INFORMATION
  Report Type: 
  Country: None (occurrence: None)
  Receive Date: 20111103
  Receipt Date: 20100920
  Transmission Date: 20120403
  Serious: Yes (Other)
  Sender: FDA-Public Use
  Company Number: US-BRISTOL-MYERS SQUIBB COMPANY-15296064

PATIENT
  Age: 28 Year
  Sex: Female
  Weight: 50 kg

DRUGS (1)
  1. KENALOG-40 [Suspect]
     Indication: HYPERSENSITIVITY
     Route: 030
     Dates: start: 20100329

REACTIONS (7)
  - ANXIETY [None]
  - INJECTION SITE DISCOLOURATION [None]
  - INSOMNIA [None]
  - INJECTION SITE PAIN [None]
  - INJECTION SITE ATROPHY [None]
  - INJECTION SITE HAEMATOMA [None]
  - DEPRESSION [None]
